FAERS Safety Report 20694790 (Version 1)
Quarter: 2022Q2

REPORT INFORMATION
  Report Type: Spontaneous
  Country: US (occurrence: None)
  Receive Date: 20220408
  Receipt Date: 20220408
  Transmission Date: 20220721
  Serious: Yes (Other)
  Sender: FDA-Public Use
  Company Number: None

PATIENT
  Age: 51 Year
  Sex: Female
  Weight: 58.5 kg

DRUGS (3)
  1. OXYCODONE [Suspect]
     Active Substance: OXYCODONE
     Indication: Intervertebral disc protrusion
     Dosage: FREQUENCY : 4 TIMES A DAY;?
     Route: 048
     Dates: start: 20220201, end: 20220407
  2. OXYCODONE [Suspect]
     Active Substance: OXYCODONE
     Indication: Nerve injury
  3. OXYCODONE [Suspect]
     Active Substance: OXYCODONE
     Indication: Arthralgia

REACTIONS (7)
  - Headache [None]
  - Abdominal pain upper [None]
  - Vomiting [None]
  - Dizziness [None]
  - Pain [None]
  - Product substitution issue [None]
  - Therapy cessation [None]

NARRATIVE: CASE EVENT DATE: 20220405
